FAERS Safety Report 20382922 (Version 2)
Quarter: 2022Q1

REPORT INFORMATION
  Report Type: Spontaneous
  Country: US (occurrence: None)
  Receive Date: 20220127
  Receipt Date: 20220213
  Transmission Date: 20220423
  Serious: Yes (Other)
  Sender: FDA-Public Use
  Company Number: US-ROCHE-2945097

PATIENT
  Sex: Male

DRUGS (2)
  1. COTELLIC [Suspect]
     Active Substance: COBIMETINIB
     Indication: Metabolic disorder
     Dosage: FOR 21 DAYS AND 28 DAYS
     Route: 048
     Dates: start: 202110
  2. COTELLIC [Suspect]
     Active Substance: COBIMETINIB
     Indication: Erdheim-Chester disease
     Route: 048
     Dates: start: 20211013

REACTIONS (7)
  - Cardiomyopathy [Unknown]
  - Rash [Recovered/Resolved]
  - Diarrhoea [Unknown]
  - Off label use [Unknown]
  - Oedema peripheral [Unknown]
  - COVID-19 [Unknown]
  - Hernia [Unknown]
